FAERS Safety Report 9066373 (Version 1)
Quarter: 2013Q1

REPORT INFORMATION
  Report Type: Spontaneous
  Country: US (occurrence: US)
  Receive Date: 20130214
  Receipt Date: 20130214
  Transmission Date: 20140127
  Serious: Yes (Other)
  Sender: FDA-Public Use
  Company Number: US-ROCHE-1046903

PATIENT
  Age: 30 None
  Sex: Male
  Weight: 79.45 kg

DRUGS (3)
  1. ACCUTANE [Suspect]
     Indication: ACNE
     Route: 065
     Dates: start: 1984, end: 1985
  2. ACCUTANE [Suspect]
     Route: 065
     Dates: end: 1986
  3. ACCUTANE [Suspect]
     Route: 065
     Dates: end: 1987

REACTIONS (10)
  - Colitis ulcerative [Unknown]
  - Bipolar I disorder [Unknown]
  - Inflammatory bowel disease [Unknown]
  - Intestinal haemorrhage [Unknown]
  - Intestinal obstruction [Unknown]
  - Ileal perforation [Unknown]
  - Mental disorder [Unknown]
  - Suicidal ideation [Unknown]
  - Irritable bowel syndrome [Unknown]
  - Dry skin [Unknown]
